FAERS Safety Report 12538225 (Version 1)
Quarter: 2016Q3

REPORT INFORMATION
  Report Type: Spontaneous
  Country: FR (occurrence: FR)
  Receive Date: 20160707
  Receipt Date: 20160707
  Transmission Date: 20161109
  Serious: Yes (Life-Threatening, Hospitalization)
  Sender: FDA-Public Use
  Company Number: FR-ASTRAZENECA-2016SE72371

PATIENT
  Age: 28250 Day
  Sex: Male

DRUGS (17)
  1. SODIUM PIPERACILLIN [Suspect]
     Active Substance: PIPERACILLIN SODIUM
     Indication: LUNG DISORDER
     Route: 042
     Dates: start: 20160125, end: 20160212
  2. FORLAX [Concomitant]
     Active Substance: POLYETHYLENE GLYCOL 4000
     Route: 048
  3. INEXIUM [Concomitant]
     Active Substance: ESOMEPRAZOLE
     Dates: end: 20160115
  4. AMIODARONE [Suspect]
     Active Substance: AMIODARONE
     Indication: ARRHYTHMIA
     Route: 065
     Dates: start: 20160115, end: 201602
  5. LOVENOX [Suspect]
     Active Substance: ENOXAPARIN SODIUM
     Indication: THROMBOSIS PROPHYLAXIS
     Route: 058
     Dates: start: 20160115, end: 20160212
  6. IMOVANE [Concomitant]
     Active Substance: ZOPICLONE
     Route: 048
  7. PANTOPRAZOLE [Suspect]
     Active Substance: PANTOPRAZOLE SODIUM
     Indication: OESOPHAGITIS
     Route: 065
     Dates: start: 20160115, end: 20160212
  8. AUGMENTIN [Concomitant]
     Active Substance: AMOXICILLIN\CLAVULANATE POTASSIUM
     Indication: SEPSIS
     Dates: start: 20160116, end: 20160125
  9. PLAVIX [Concomitant]
     Active Substance: CLOPIDOGREL BISULFATE
     Indication: MYOCARDIAL ISCHAEMIA
     Dates: start: 20160215
  10. TADENAN [Concomitant]
     Active Substance: PYGEUM
     Route: 042
     Dates: end: 20160115
  11. BRILIQUE [Suspect]
     Active Substance: TICAGRELOR
     Indication: MYOCARDIAL ISCHAEMIA
     Route: 048
     Dates: start: 20160211, end: 20160212
  12. PLAVIX [Concomitant]
     Active Substance: CLOPIDOGREL BISULFATE
     Indication: MYOCARDIAL ISCHAEMIA
     Dates: start: 20160128, end: 20160210
  13. SODIUM TAZOBACTAM [Suspect]
     Active Substance: TAZOBACTAM SODIUM
     Indication: LUNG DISORDER
     Route: 042
     Dates: start: 20160125, end: 20160212
  14. AMLODIPINE [Concomitant]
     Active Substance: AMLODIPINE BESYLATE
     Route: 048
  15. BRILIQUE [Suspect]
     Active Substance: TICAGRELOR
     Indication: MYOCARDIAL ISCHAEMIA
     Route: 048
     Dates: start: 20160115, end: 20160127
  16. KARDEGIC [Concomitant]
     Active Substance: ASPIRIN LYSINE
     Route: 048
  17. BISOPROLOL [Concomitant]
     Active Substance: BISOPROLOL
     Route: 048
     Dates: start: 20160115

REACTIONS (9)
  - Respiratory tract haemorrhage [Unknown]
  - Agitation [Unknown]
  - Sepsis [Unknown]
  - Escherichia test positive [None]
  - Off label use [Recovered/Resolved]
  - Lung disorder [None]
  - Enterobacter test positive [None]
  - Immune thrombocytopenic purpura [Recovered/Resolved]
  - Oxygen saturation decreased [Unknown]

NARRATIVE: CASE EVENT DATE: 20160212
